FAERS Safety Report 24864127 (Version 1)
Quarter: 2025Q1

REPORT INFORMATION
  Report Type: Spontaneous
  Country: US (occurrence: US)
  Receive Date: 20250120
  Receipt Date: 20250120
  Transmission Date: 20250409
  Serious: No
  Sender: BRISTOL-MYERS SQUIBB COMPANY
  Company Number: US-BRISTOL-MYERS SQUIBB COMPANY-2025-003755

PATIENT
  Sex: Female

DRUGS (2)
  1. COBENFY [Suspect]
     Active Substance: TROSPIUM CHLORIDE\XANOMELINE
     Indication: Schizophrenia
  2. CLOZAPINE [Concomitant]
     Active Substance: CLOZAPINE
     Indication: Product used for unknown indication

REACTIONS (2)
  - Vomiting [Unknown]
  - Gastrointestinal disorder [Unknown]
